FAERS Safety Report 8550291-0 (Version None)
Quarter: 2012Q3

REPORT INFORMATION
  Report Type: 
  Country: None (occurrence: None)
  Receive Date: 20120730
  Receipt Date: 20120726
  Transmission Date: 20120928
  Serious: Yes (Death, Other)
  Sender: FDA-Public Use
  Company Number: PHHY2012IT064590

PATIENT
  Sex: Male

DRUGS (4)
  1. DOXORUBICIN HYDROCHLORIDE [Suspect]
     Indication: DIFFUSE LARGE B-CELL LYMPHOMA
     Dosage: 380 MG
     Route: 042
     Dates: start: 20070313, end: 20070517
  2. ZEVALIN [Suspect]
     Indication: DIFFUSE LARGE B-CELL LYMPHOMA
     Dosage: 1.6 MG
     Route: 042
     Dates: start: 20070719, end: 20070719
  3. VINCRISTINE [Suspect]
     Indication: DIFFUSE LARGE B-CELL LYMPHOMA
     Dosage: 8 MG
     Route: 042
     Dates: start: 20070313, end: 20070517
  4. CYCLOPHOSPHAMIDE [Suspect]
     Indication: DIFFUSE LARGE B-CELL LYMPHOMA
     Dosage: 5700 MG
     Route: 042
     Dates: start: 20070313, end: 20070517

REACTIONS (2)
  - MYELODYSPLASTIC SYNDROME [None]
  - AZOTAEMIA [None]
